FAERS Safety Report 7225887-9 (Version None)
Quarter: 2011Q1

REPORT INFORMATION
  Report Type: 
  Country: None (occurrence: None)
  Receive Date: 20110113
  Receipt Date: 20110105
  Transmission Date: 20110831
  Serious: Yes (Other)
  Sender: FDA-Public Use
  Company Number: CA-ROCHE-746997

PATIENT
  Sex: Female

DRUGS (10)
  1. ASPIRIN [Concomitant]
  2. BEVACIZUMAB [Suspect]
     Dosage: FORM INFUSION
     Route: 042
     Dates: start: 20101117
  3. VITAMINE D [Concomitant]
  4. ALTACE [Concomitant]
  5. LIPITOR [Concomitant]
  6. LOPRESSOR [Concomitant]
  7. CALCIUM [Concomitant]
  8. SOLU-MEDROL [Concomitant]
     Indication: PREMEDICATION
     Dosage: ONCE
     Route: 042
     Dates: start: 20101222, end: 20101222
  9. BEVACIZUMAB [Suspect]
     Route: 042
  10. BENADRYL [Concomitant]
     Indication: PREMEDICATION
     Dosage: ONCE
     Route: 048
     Dates: start: 20101222, end: 20101222

REACTIONS (16)
  - CONSTIPATION [None]
  - MUSCULOSKELETAL PAIN [None]
  - BLOOD CALCIUM DECREASED [None]
  - ALANINE AMINOTRANSFERASE INCREASED [None]
  - RED CELL DISTRIBUTION WIDTH INCREASED [None]
  - MEAN CELL VOLUME INCREASED [None]
  - LIVER DISORDER [None]
  - FATIGUE [None]
  - BLOOD UREA DECREASED [None]
  - ASPARTATE AMINOTRANSFERASE INCREASED [None]
  - BLOOD POTASSIUM DECREASED [None]
  - NASOPHARYNGITIS [None]
  - COUGH [None]
  - BLOOD ALBUMIN DECREASED [None]
  - BLOOD ALKALINE PHOSPHATASE INCREASED [None]
  - BLOOD BILIRUBIN INCREASED [None]
